FAERS Safety Report 9338648 (Version 2)
Quarter: 2014Q2

REPORT INFORMATION
  Report Type: Report from Study
  Country: CA (occurrence: CA)
  Receive Date: 20130610
  Receipt Date: 20140523
  Transmission Date: 20141212
  Serious: Yes (Other)
  Sender: FDA-Public Use
  Company Number: CA-JNJFOC-20130601479

PATIENT
  Age: 16 Year
  Sex: Female
  Weight: 43.09 kg

DRUGS (6)
  1. REMICADE [Suspect]
     Indication: CROHN^S DISEASE
     Route: 042
     Dates: start: 20130112
  2. REMICADE [Suspect]
     Indication: CROHN^S DISEASE
     Route: 042
  3. REMICADE [Suspect]
     Indication: CROHN^S DISEASE
     Route: 042
     Dates: start: 20130601
  4. METHOTREXATE [Concomitant]
     Route: 065
  5. CIPRALEX [Concomitant]
     Dosage: ^DIE^
     Route: 048
     Dates: start: 20130427
  6. FOLIC ACID [Concomitant]
     Dosage: ^DIE^
     Route: 048
     Dates: start: 20130420

REACTIONS (3)
  - Anal fissure [Recovered/Resolved]
  - Blood urine present [Unknown]
  - Drug ineffective [Unknown]
